FAERS Safety Report 10149359 (Version 1)
Quarter: 2014Q2

REPORT INFORMATION
  Report Type: Spontaneous
  Country: US (occurrence: None)
  Receive Date: 20140430
  Receipt Date: 20140430
  Transmission Date: 20141212
  Serious: Yes (Hospitalization, Other)
  Sender: FDA-Public Use
  Company Number: 2014-US-004625

PATIENT
  Sex: Female

DRUGS (4)
  1. XYREM (SODIUM OXYBATE) ORAL SOLUTION; 500 MG/ML [Suspect]
     Indication: PRODUCT USED FOR UNKNOWN INDICATION
     Route: 048
  2. XANAX (ALPRAZOLAM) [Suspect]
     Indication: PRODUCT USED FOR UNKNOWN INDICATION
  3. KLONOPIN (CLONAZEPAM) (TABLETS) [Suspect]
     Indication: PRODUCT USED FOR UNKNOWN INDICATION
  4. HEROIN (HEROIN) [Suspect]
     Indication: PRODUCT USED FOR UNKNOWN INDICATION

REACTIONS (2)
  - Drug detoxification [None]
  - Somnambulism [None]
